FAERS Safety Report 5385799-2 (Version None)
Quarter: 2007Q3

REPORT INFORMATION
  Report Type: 
  Country: None (occurrence: None)
  Receive Date: 20070712
  Receipt Date: 20070705
  Transmission Date: 20080115
  Serious: Yes (Other)
  Sender: FDA-Public Use
  Company Number: US-ASTRAZENECA-2007UW01297

PATIENT
  Age: 44 Year
  Sex: Female
  Weight: 52.2 kg

DRUGS (12)
  1. PULMICORT [Suspect]
     Indication: ASTHMA
     Route: 055
     Dates: start: 20070112, end: 20070123
  2. PULMICORT [Suspect]
     Route: 055
     Dates: start: 20070101, end: 20070703
  3. ADVAIR DISKUS 100/50 [Suspect]
     Indication: ASTHMA
     Route: 055
     Dates: start: 20061205, end: 20070112
  4. ADVAIR DISKUS 100/50 [Suspect]
     Route: 055
     Dates: start: 20070123
  5. PRILOSEC [Concomitant]
  6. ULTRAM [Concomitant]
  7. ZINC [Concomitant]
  8. LEXAPRO [Concomitant]
     Dates: end: 20070121
  9. CLONAZEPAM [Concomitant]
  10. DECONGESTANT [Concomitant]
  11. SINGULAIR [Concomitant]
  12. ALBUTEROL [Concomitant]

REACTIONS (22)
  - CHEST PAIN [None]
  - DISORIENTATION [None]
  - EAR PAIN [None]
  - EPISTAXIS [None]
  - FACIAL PAIN [None]
  - GAIT DISTURBANCE [None]
  - HEADACHE [None]
  - HYDROCEPHALUS [None]
  - MENINGISM [None]
  - MUSCULAR WEAKNESS [None]
  - MUSCULOSKELETAL STIFFNESS [None]
  - NASOPHARYNGITIS [None]
  - NAUSEA [None]
  - NECK PAIN [None]
  - PHARYNGEAL OEDEMA [None]
  - RESPIRATORY TRACT INFECTION [None]
  - RHINORRHOEA [None]
  - SINUSITIS [None]
  - THROAT TIGHTNESS [None]
  - VISION BLURRED [None]
  - VOMITING [None]
  - WHEELCHAIR USER [None]
